FAERS Safety Report 10912331 (Version 2)
Quarter: 2015Q2

REPORT INFORMATION
  Report Type: Spontaneous
  Country: FR (occurrence: FR)
  Receive Date: 20150313
  Receipt Date: 20150506
  Transmission Date: 20150821
  Serious: Yes (Death, Other)
  Sender: FDA-Public Use
  Company Number: FR-SA-2015SA027928

PATIENT
  Age: 59 Year
  Sex: Female
  Weight: 57.5 kg

DRUGS (21)
  1. RIFADINE [Suspect]
     Active Substance: RIFAMPIN
     Route: 065
     Dates: start: 20150218
  2. FOSRENOL [Concomitant]
     Active Substance: LANTHANUM CARBONATE
  3. ARANESP [Concomitant]
     Active Substance: DARBEPOETIN ALFA
     Dates: end: 20150220
  4. SODIUM THIOSULFATE [Suspect]
     Active Substance: SODIUM THIOSULFATE
     Dosage: FREQUENCY- 3 WEEKS/  3* /WEEK
     Route: 042
     Dates: start: 20150206, end: 20150219
  5. SODIUM THIOSULFATE [Suspect]
     Active Substance: SODIUM THIOSULFATE
     Dosage: DOSE- DOSE DECREASED BY 2?FREQUENCY- 3 WEEKS
     Route: 042
     Dates: start: 20150220, end: 20150222
  6. DOLIPRANE [Concomitant]
     Active Substance: ACETAMINOPHEN
  7. ZYLORIC [Concomitant]
     Active Substance: ALLOPURINOL
  8. TAHOR [Concomitant]
     Active Substance: ATORVASTATIN CALCIUM
  9. GENTAMICIN ^PANPHARMA^ [Concomitant]
     Active Substance: GENTAMICIN
     Dates: end: 20150218
  10. LESCOL [Concomitant]
     Active Substance: FLUVASTATIN SODIUM
  11. CELLCEPT [Concomitant]
     Active Substance: MYCOPHENOLATE MOFETIL\MYCOPHENOLATE MOFETIL HYDROCHLORIDE
     Dosage: 1-0-1
  12. MIMPARA [Concomitant]
     Active Substance: CINACALCET HYDROCHLORIDE
     Dosage: 0-1-0
  13. CARDENSIEL [Concomitant]
     Active Substance: BISOPROLOL FUMARATE
     Dosage: FILM COATED DIVISIBLE TABLETS
     Dates: end: 20150219
  14. CUBICIN [Concomitant]
     Active Substance: DAPTOMYCIN
     Route: 042
     Dates: start: 20150210, end: 20150225
  15. ATARAX [Concomitant]
     Active Substance: HYDROXYZINE\HYDROXYZINE HYDROCHLORIDE
  16. DEROXAT [Concomitant]
     Active Substance: PAROXETINE HYDROCHLORIDE
     Dosage: FILM-COATED DIVISIBLE TABLETS. 1/2-0-0
  17. INEXIUM [Concomitant]
     Active Substance: ESOMEPRAZOLE
  18. LASILIX [Concomitant]
     Active Substance: FUROSEMIDE
     Dosage: 1-0-0
  19. EMLA [Concomitant]
     Active Substance: LIDOCAINE\PRILOCAINE
  20. HEPARIN SODIUM. [Concomitant]
     Active Substance: HEPARIN SODIUM
     Route: 058
  21. TRIATEC [Concomitant]
     Active Substance: RAMIPRIL

REACTIONS (3)
  - Anion gap increased [Fatal]
  - Metabolic acidosis [Fatal]
  - Jaundice [Not Recovered/Not Resolved]

NARRATIVE: CASE EVENT DATE: 20150220
